FAERS Safety Report 7281268-3 (Version None)
Quarter: 2011Q1

REPORT INFORMATION
  Report Type: 
  Country: None (occurrence: None)
  Receive Date: 20110208
  Receipt Date: 20110201
  Transmission Date: 20110831
  Serious: Yes (Other)
  Sender: FDA-Public Use
  Company Number: CHPA2011US02382

PATIENT
  Age: 76 Year
  Sex: Male
  Weight: 74.83 kg

DRUGS (3)
  1. VERAPAMIL [Concomitant]
     Indication: HYPERTENSION
     Dosage: 180 MG, UNK
     Route: 048
  2. HYDROCHLOROTHIAZDE TAB [Concomitant]
     Indication: HYPERTENSION
     Dosage: UNK
     Route: 048
  3. PREVACID 24 HR [Suspect]
     Indication: GASTROOESOPHAGEAL REFLUX DISEASE
     Dosage: 15 MG, BID
     Route: 048
     Dates: start: 20100101

REACTIONS (7)
  - PNEUMONIA [None]
  - MUSCULOSKELETAL PAIN [None]
  - MYALGIA [None]
  - DRUG INEFFECTIVE FOR UNAPPROVED INDICATION [None]
  - OVERDOSE [None]
  - HYPERHIDROSIS [None]
  - INTENTIONAL DRUG MISUSE [None]
